FAERS Safety Report 8518510-4 (Version None)
Quarter: 2012Q3

REPORT INFORMATION
  Report Type: 
  Country: None (occurrence: None)
  Receive Date: 20120718
  Receipt Date: 20120705
  Transmission Date: 20120928
  Serious: No
  Sender: FDA-Public Use
  Company Number: US-ASTRAZENECA-2012SE46034

PATIENT
  Age: 64 Year
  Sex: Female
  Weight: 70.8 kg

DRUGS (3)
  1. PRILOSEC OTC [Suspect]
     Route: 048
     Dates: end: 20120628
  2. PRILOSEC [Suspect]
     Indication: EPIGASTRIC DISCOMFORT
     Route: 048
     Dates: start: 20120628, end: 20120705
  3. OTHER MEDICATIONS [Concomitant]

REACTIONS (5)
  - EAR INFECTION [None]
  - PHARYNGEAL OEDEMA [None]
  - RASH [None]
  - OROPHARYNGEAL BLISTERING [None]
  - DYSPHONIA [None]
